FAERS Safety Report 20924671 (Version 1)
Quarter: 2022Q2

REPORT INFORMATION
  Report Type: Spontaneous
  Country: US (occurrence: None)
  Receive Date: 20220607
  Receipt Date: 20220607
  Transmission Date: 20220720
  Serious: Yes (Other)
  Sender: FDA-Public Use
  Company Number: US-ROCHE-3108666

PATIENT
  Sex: Female

DRUGS (1)
  1. RITUXIMAB [Suspect]
     Active Substance: RITUXIMAB
     Indication: Vasculitis
     Route: 065

REACTIONS (5)
  - Blood blister [Unknown]
  - Pustule [Unknown]
  - Deafness [Unknown]
  - Off label use [Unknown]
  - Skin ulcer [Unknown]
